FAERS Safety Report 9404781 (Version 1)
Quarter: 2013Q3

REPORT INFORMATION
  Report Type: Spontaneous
  Country: BR (occurrence: BR)
  Receive Date: 20130717
  Receipt Date: 20130717
  Transmission Date: 20140515
  Serious: Yes (Other)
  Sender: FDA-Public Use
  Company Number: BR-PFIZER INC-2013062602

PATIENT
  Age: 67 Year
  Sex: Male
  Weight: 72 kg

DRUGS (2)
  1. DETRUSITOL LA [Suspect]
     Indication: HYPERTONIC BLADDER
     Dosage: 4 MG, 1X/DAY
     Route: 048
     Dates: start: 201302
  2. BROMAZEPAM [Concomitant]
     Indication: RELAXATION THERAPY
     Dosage: 0.75 MG, 1X/DAY

REACTIONS (14)
  - Urinary retention [Unknown]
  - Bladder pain [Unknown]
  - Urinary tract pain [Unknown]
  - Gait disturbance [Unknown]
  - Decreased appetite [Recovered/Resolved]
  - Weight decreased [Unknown]
  - Neck pain [Unknown]
  - Formication [Unknown]
  - Dysuria [Unknown]
  - Pollakiuria [Unknown]
  - Feeling of relaxation [Unknown]
  - Pre-existing condition improved [Unknown]
  - Therapeutic response unexpected [Unknown]
  - Insomnia [Recovered/Resolved]
